FAERS Safety Report 5960893-3 (Version None)
Quarter: 2008Q4

REPORT INFORMATION
  Report Type: 
  Country: None (occurrence: None)
  Receive Date: 20081118
  Receipt Date: 20081107
  Transmission Date: 20090506
  Serious: No
  Sender: FDA-Public Use
  Company Number: CERZ-1000299

PATIENT
  Age: 56 Year
  Weight: 55 kg

DRUGS (7)
  1. CEREZYME [Suspect]
     Indication: GAUCHER'S DISEASE
     Dosage: 3200 U, Q2W, INTRAVENOUS
     Route: 042
     Dates: start: 20000101
  2. PLAVIX [Concomitant]
  3. FONZYLANE (BUFLOMEDIL HYDROCHLORIDE) [Concomitant]
  4. ZOCOR [Concomitant]
  5. XANAX [Concomitant]
  6. PAROXETINE HYDROCHLORIDE [Concomitant]
  7. MITRIDERM (GLYCERYL TRINITRATE) [Concomitant]

REACTIONS (1)
  - BLOOD PRESSURE INCREASED [None]
